FAERS Safety Report 20092610 (Version 1)
Quarter: 2021Q4

REPORT INFORMATION
  Report Type: Spontaneous
  Country: GB (occurrence: GB)
  Receive Date: 20211119
  Receipt Date: 20211119
  Transmission Date: 20220303
  Serious: Yes (Hospitalization)
  Sender: FDA-Public Use
  Company Number: GB-CELLTRION INC.-2021GB015439

PATIENT

DRUGS (1)
  1. INFLIXIMAB [Suspect]
     Active Substance: INFLIXIMAB
     Indication: Product used for unknown indication
     Dosage: 120 MG, FORTNIGHTLY (REPORTED AS FORTNIG)
     Route: 058

REACTIONS (2)
  - Hospitalisation [Unknown]
  - Product dose omission issue [Unknown]
